FAERS Safety Report 5057598-2 (Version None)
Quarter: 2006Q3

REPORT INFORMATION
  Report Type: 
  Country: None (occurrence: None)
  Receive Date: 20060721
  Receipt Date: 20051213
  Transmission Date: 20061208
  Serious: No
  Sender: FDA-Public Use
  Company Number: US-GLAXOSMITHKLINE-A0585695A

PATIENT
  Age: 83 Year
  Sex: Female

DRUGS (5)
  1. AVANDIA [Suspect]
     Indication: DRUG USE FOR UNKNOWN INDICATION
     Dosage: 1MG PER DAY
     Route: 048
     Dates: start: 20051210
  2. PREDNISONE [Concomitant]
  3. PREMARIN [Concomitant]
  4. THYROID TAB [Concomitant]
  5. ASPIRIN [Concomitant]

REACTIONS (2)
  - FATIGUE [None]
  - SWELLING [None]
